FAERS Safety Report 11762529 (Version 1)
Quarter: 2015Q4

REPORT INFORMATION
  Report Type: Spontaneous
  Country: TW (occurrence: TW)
  Receive Date: 20151120
  Receipt Date: 20151120
  Transmission Date: 20160304
  Serious: Yes (Other)
  Sender: FDA-Public Use
  Company Number: PHHY2015TW150833

PATIENT
  Age: 25 Year
  Sex: Female

DRUGS (2)
  1. ZIPRASIDONE. [Suspect]
     Active Substance: ZIPRASIDONE
     Dosage: 200 MG, QD
     Route: 065
  2. ZIPRASIDONE. [Suspect]
     Active Substance: ZIPRASIDONE
     Indication: MENTAL DISORDER
     Dosage: 240 MG, QD
     Route: 065

REACTIONS (3)
  - Akathisia [Recovered/Resolved]
  - Weight increased [Unknown]
  - Off label use [Unknown]
